FAERS Safety Report 13911504 (Version 1)
Quarter: 2017Q3

REPORT INFORMATION
  Report Type: Spontaneous
  Country: US (occurrence: US)
  Receive Date: 20170828
  Receipt Date: 20170828
  Transmission Date: 20171127
  Serious: No
  Sender: FDA-Public Use
  Company Number: US-ROCHE-1141557

PATIENT
  Age: 11 Year
  Sex: Male
  Weight: 33 kg

DRUGS (1)
  1. NUTROPIN [Suspect]
     Active Substance: SOMATROPIN
     Indication: DWARFISM
     Route: 058
     Dates: start: 19991124

REACTIONS (2)
  - Spinal deformity [Unknown]
  - Aggression [Unknown]

NARRATIVE: CASE EVENT DATE: 200005
